FAERS Safety Report 22048462 (Version 1)
Quarter: 2023Q1

REPORT INFORMATION
  Report Type: Spontaneous
  Country: SE (occurrence: SE)
  Receive Date: 20230301
  Receipt Date: 20230301
  Transmission Date: 20230418
  Serious: Yes (Other)
  Sender: FDA-Public Use
  Company Number: None

PATIENT
  Age: 33 Year
  Sex: Female
  Weight: 97 kg

DRUGS (1)
  1. ESCITALOPRAM [Suspect]
     Active Substance: ESCITALOPRAM OXALATE
     Indication: Depression
     Dosage: 20 MG FILM-COATED TABLET, 20 MG 1 TAB 1 GG DAY
     Dates: start: 2017, end: 2022

REACTIONS (1)
  - Compulsive shopping [Recovering/Resolving]

NARRATIVE: CASE EVENT DATE: 20180101
